FAERS Safety Report 7341572-7 (Version None)
Quarter: 2011Q1

REPORT INFORMATION
  Report Type: 
  Country: None (occurrence: None)
  Receive Date: 20110309
  Receipt Date: 20110209
  Transmission Date: 20110831
  Serious: No
  Sender: FDA-Public Use
  Company Number: US-B.I. PHARMACEUTICALS,INC./RIDGEFIELD-2010-BP-07739BP

PATIENT
  Age: 56 Year
  Sex: Male

DRUGS (3)
  1. SINEMET [Concomitant]
  2. MIRAPEX [Suspect]
     Indication: PARKINSON'S DISEASE
     Route: 048
     Dates: start: 20100801
  3. STALEVO 100 [Concomitant]
     Indication: PARKINSON'S DISEASE

REACTIONS (3)
  - COMPULSIVE SHOPPING [None]
  - PATHOLOGICAL GAMBLING [None]
  - IMPULSE-CONTROL DISORDER [None]
